FAERS Safety Report 7611731-4 (Version None)
Quarter: 2011Q3

REPORT INFORMATION
  Report Type: 
  Country: None (occurrence: None)
  Receive Date: 20110706
  Receipt Date: 20110615
  Transmission Date: 20111222
  Serious: Yes (Death, Hospitalization, Other)
  Sender: FDA-Public Use
  Company Number: 2011PROUSA00348

PATIENT
  Age: 62 Year
  Sex: Male
  Weight: 126.3 kg

DRUGS (16)
  1. ZOMETA [Concomitant]
  2. ZOLPIDEM [Concomitant]
  3. OXYCODONE HCL [Concomitant]
  4. CALTRATE /00751519/ (CALCIUM CARBONATE) [Concomitant]
  5. INDOCIN /00003801/ (INDOMETHACIN) [Concomitant]
  6. MULTIVITAMINS (ASCORBIC ACID, ERGOCALCIFEROL, FOLIC ACID, NICOTINAMIDE [Concomitant]
  7. PROVENGE [Suspect]
     Indication: PROSTATE CANCER METASTATIC
     Dosage: 250 ML, SINGLE, INTRAVENOUS
     Route: 042
     Dates: start: 20110407, end: 20110407
  8. FERGON (FERROUS GLUCONATE) [Concomitant]
  9. LUPRON [Concomitant]
  10. CALCIUM (CALCIUM) [Concomitant]
  11. NEURONTIN [Concomitant]
  12. CASODEX [Concomitant]
  13. ATENOLOL [Concomitant]
  14. ONDANSETRON [Concomitant]
  15. TERAZOSIN HCL [Concomitant]
  16. ASPIRIN [Concomitant]

REACTIONS (10)
  - PROSTATE CANCER [None]
  - TRIGEMINAL NEURALGIA [None]
  - SUBDURAL HAEMATOMA [None]
  - WEIGHT DECREASED [None]
  - HYPOAESTHESIA [None]
  - HAEMATURIA [None]
  - NEOPLASM PROGRESSION [None]
  - NEUROLOGICAL SYMPTOM [None]
  - ANAEMIA [None]
  - MENINGITIS [None]
